FAERS Safety Report 17640738 (Version 3)
Quarter: 2020Q2

REPORT INFORMATION
  Report Type: Spontaneous
  Country: JP (occurrence: JP)
  Receive Date: 20200407
  Receipt Date: 20200602
  Transmission Date: 20200713
  Serious: Yes (Other)
  Sender: FDA-Public Use
  Company Number: NVSC2020JP093606

PATIENT
  Age: 75 Year
  Sex: Male

DRUGS (19)
  1. RIVASTACH [Suspect]
     Active Substance: RIVASTIGMINE
     Dosage: UNK
     Route: 062
     Dates: start: 202003, end: 202003
  2. TETRAMIDE [Concomitant]
     Active Substance: MIANSERIN
     Indication: PRODUCT USED FOR UNKNOWN INDICATION
     Dosage: 20 MG, QD (EVENING)
     Route: 048
  3. YOKUKANSAN [Concomitant]
     Active Substance: HERBALS
     Indication: PRODUCT USED FOR UNKNOWN INDICATION
     Dosage: 2.5 G, Q8H
     Route: 048
  4. RIVASTACH [Suspect]
     Active Substance: RIVASTIGMINE
     Dosage: 18 MG
     Route: 062
     Dates: start: 20190928, end: 20200309
  5. RIVASTACH [Suspect]
     Active Substance: RIVASTIGMINE
     Dosage: UNK
     Route: 062
     Dates: start: 202003, end: 20200330
  6. MAGMITT [Concomitant]
     Active Substance: MAGNESIUM OXIDE
     Indication: PRODUCT USED FOR UNKNOWN INDICATION
     Dosage: 660 MG, Q8H
     Route: 048
  7. TETRAMIDE [Concomitant]
     Active Substance: MIANSERIN
     Dosage: 20 MG, EVERYDAY(EVENING)
     Route: 048
  8. RISPERIDONE. [Concomitant]
     Active Substance: RISPERIDONE
     Dosage: 0.5 MG, EVERYDAY(EVENING)
     Route: 048
  9. MAGMITT [Concomitant]
     Active Substance: MAGNESIUM OXIDE
     Dosage: 660 MG, Q8H
     Route: 048
  10. RIVASTACH [Suspect]
     Active Substance: RIVASTIGMINE
     Dosage: 18 MG
     Route: 062
     Dates: start: 202003, end: 202003
  11. MEMARY [Concomitant]
     Active Substance: MEMANTINE HYDROCHLORIDE
     Indication: PRODUCT USED FOR UNKNOWN INDICATION
     Dosage: 20 MG, QD(EVENING)
     Route: 048
  12. RISPERIDONE. [Concomitant]
     Active Substance: RISPERIDONE
     Indication: PRODUCT USED FOR UNKNOWN INDICATION
     Dosage: 0.5 MG, QD (EVENING)
     Route: 048
  13. YOKUKANSAN [Concomitant]
     Active Substance: HERBALS
     Dosage: 2.5 G, Q8H
     Route: 048
  14. RIVASTACH [Suspect]
     Active Substance: RIVASTIGMINE
     Dosage: UNK MG
     Route: 062
     Dates: start: 20190629
  15. RIVASTACH [Suspect]
     Active Substance: RIVASTIGMINE
     Dosage: UNK
     Route: 062
     Dates: start: 20200310, end: 202003
  16. MEMARY [Concomitant]
     Active Substance: MEMANTINE HYDROCHLORIDE
     Dosage: 20 MG, EVERYDAY(EVENING)
     Route: 048
  17. RIVASTACH [Suspect]
     Active Substance: RIVASTIGMINE
     Indication: DEMENTIA ALZHEIMER^S TYPE
     Dosage: UNK MG
     Route: 062
  18. RIVASTACH [Suspect]
     Active Substance: RIVASTIGMINE
     Dosage: 13.5 MG
     Route: 062
     Dates: start: 202003, end: 202003
  19. RIVASTACH [Suspect]
     Active Substance: RIVASTIGMINE
     Dosage: UNK
     Route: 062
     Dates: start: 202003, end: 202003

REACTIONS (2)
  - Blood pressure decreased [Recovering/Resolving]
  - Petit mal epilepsy [Recovered/Resolved]

NARRATIVE: CASE EVENT DATE: 20200306
